FAERS Safety Report 21794663 (Version 1)
Quarter: 2022Q4

REPORT INFORMATION
  Report Type: Report from Study
  Country: KR (occurrence: KR)
  Receive Date: 20221229
  Receipt Date: 20221229
  Transmission Date: 20230112
  Serious: Yes (Hospitalization, Other)
  Sender: FDA-Public Use
  Company Number: KR-MYLANLABS-2022M1146224

PATIENT
  Age: 57 Year
  Sex: Female

DRUGS (13)
  1. TRASTUZUMAB [Suspect]
     Active Substance: TRASTUZUMAB
     Indication: Product used for unknown indication
     Dosage: 360 MILLIGRAM, QD
     Route: 042
     Dates: start: 20190416, end: 20190416
  2. TRASTUZUMAB [Suspect]
     Active Substance: TRASTUZUMAB
     Dosage: 270 MILLIGRAM, QD
     Route: 042
     Dates: start: 20190514, end: 20190514
  3. TRASTUZUMAB [Suspect]
     Active Substance: TRASTUZUMAB
     Dosage: 288 MILLIGRAM, QD
     Route: 042
     Dates: start: 20190611, end: 20190611
  4. TRASTUZUMAB [Suspect]
     Active Substance: TRASTUZUMAB
     Dosage: 273.6 MILLIGRAM, QD
     Route: 042
     Dates: start: 20190708, end: 20190708
  5. TRASTUZUMAB [Suspect]
     Active Substance: TRASTUZUMAB
     Dosage: 309.6 MILLIGRAM, QD
     Route: 042
     Dates: start: 20190806, end: 20190806
  6. ACETAMINOPHEN [Concomitant]
     Active Substance: ACETAMINOPHEN
     Indication: Breast cancer female
     Dosage: UNK, QD
     Route: 048
     Dates: start: 20190416, end: 20190806
  7. TRAMADOL HYDROCHLORIDE [Concomitant]
     Active Substance: TRAMADOL HYDROCHLORIDE
     Dosage: UNK
     Route: 042
     Dates: start: 20190812, end: 20190816
  8. MEGESTROL ACETATE [Concomitant]
     Active Substance: MEGESTROL ACETATE
     Dosage: UNK, QD
     Route: 048
     Dates: start: 20190812, end: 20190813
  9. QUETIAPINE FUMARATE [Concomitant]
     Active Substance: QUETIAPINE FUMARATE
     Indication: Delirium
     Dosage: UNK, QD
     Route: 048
     Dates: start: 20190425
  10. BUSPIRONE HYDROCHLORIDE [Concomitant]
     Active Substance: BUSPIRONE HYDROCHLORIDE
     Indication: Delirium
     Dosage: UNK, QD
     Route: 048
     Dates: start: 20190427, end: 20190911
  11. NEURONTIN [Concomitant]
     Active Substance: GABAPENTIN
     Dosage: UNK, QD
     Route: 048
     Dates: start: 20190814, end: 20190820
  12. MORPHINE HYDROCHLORIDE [Concomitant]
     Active Substance: MORPHINE HYDROCHLORIDE
     Dosage: UNK
     Route: 042
     Dates: start: 20190402
  13. DEXAMETHASONE SODIUM PHOSPHATE [Concomitant]
     Active Substance: DEXAMETHASONE SODIUM PHOSPHATE
     Indication: Breast cancer female
     Dosage: UNK, 3XW
     Route: 042
     Dates: start: 20190416, end: 20190806

REACTIONS (7)
  - Demyelinating polyneuropathy [Recovering/Resolving]
  - Febrile neutropenia [Recovered/Resolved]
  - Periodontitis [Recovered/Resolved with Sequelae]
  - Groin pain [Recovered/Resolved]
  - Tooth disorder [Recovered/Resolved]
  - Oedema peripheral [Recovered/Resolved]
  - Diarrhoea [Recovered/Resolved]

NARRATIVE: CASE EVENT DATE: 20190811
